FAERS Safety Report 8215851-5 (Version None)
Quarter: 2012Q1

REPORT INFORMATION
  Report Type: 
  Country: None (occurrence: None)
  Receive Date: 20120316
  Receipt Date: 20120308
  Transmission Date: 20120608
  Serious: Yes (Other)
  Sender: FDA-Public Use
  Company Number: CO-JNJFOC-20120307566

PATIENT
  Sex: Male

DRUGS (2)
  1. INVEGA [Suspect]
     Indication: PRODUCT USED FOR UNKNOWN INDICATION
     Route: 048
     Dates: start: 20110901, end: 20110901
  2. RISPERDAL [Suspect]
     Indication: AUTISM
     Route: 048
     Dates: start: 20110901, end: 20110901

REACTIONS (1)
  - SELF INJURIOUS BEHAVIOUR [None]
